FAERS Safety Report 15557879 (Version 1)
Quarter: 2018Q4

REPORT INFORMATION
  Report Type: Spontaneous
  Country: FR (occurrence: FR)
  Receive Date: 20181027
  Receipt Date: 20181027
  Transmission Date: 20190205
  Serious: Yes (Death, Hospitalization)
  Sender: FDA-Public Use
  Company Number: FR-009507513-0905FRA00103

PATIENT
  Age: 71 Year
  Sex: Female
  Weight: 60 kg

DRUGS (5)
  1. EZETROL [Suspect]
     Active Substance: EZETIMIBE
     Indication: PRODUCT USED FOR UNKNOWN INDICATION
     Dosage: 10 MG, QD
     Route: 048
     Dates: start: 200802, end: 20090317
  2. TAHOR [Concomitant]
     Active Substance: ATORVASTATIN CALCIUM
     Indication: PRODUCT USED FOR UNKNOWN INDICATION
     Dosage: 40 MG, QD
     Route: 048
     Dates: start: 200802, end: 20090317
  3. FURADANTINE [Suspect]
     Active Substance: NITROFURANTOIN
     Indication: INFECTION PROPHYLAXIS
     Dosage: 25 MG, BID
     Route: 048
     Dates: start: 200803, end: 20090317
  4. FURADANTINE [Suspect]
     Active Substance: NITROFURANTOIN
     Dosage: 50 MG, QOD
     Route: 048
     Dates: start: 200803, end: 20090317
  5. NISISCO [Concomitant]
     Active Substance: HYDROCHLOROTHIAZIDE\VALSARTAN
     Indication: PRODUCT USED FOR UNKNOWN INDICATION
     Dosage: UNK
     Route: 048
     Dates: start: 2007, end: 20090317

REACTIONS (9)
  - Hepatic cirrhosis [Fatal]
  - Drug interaction [Fatal]
  - Oedema peripheral [Fatal]
  - Portal hypertension [Fatal]
  - Jaundice [Fatal]
  - Ascites [Fatal]
  - Autoimmune hepatitis [Fatal]
  - Asthenia [Fatal]
  - Decreased appetite [Fatal]

NARRATIVE: CASE EVENT DATE: 200812
